FAERS Safety Report 15786141 (Version 4)
Quarter: 2019Q3

REPORT INFORMATION
  Report Type: Spontaneous
  Country: FR (occurrence: FR)
  Receive Date: 20190103
  Receipt Date: 20190812
  Transmission Date: 20191004
  Serious: Yes (Disabling)
  Sender: FDA-Public Use
  Company Number: FR-PFIZER INC-2018535096

PATIENT
  Sex: Female
  Weight: 74 kg

DRUGS (32)
  1. FLUOROURACIL. [Suspect]
     Active Substance: FLUOROURACIL
     Dosage: 900 MG, CYCLIC (QCY)
     Route: 042
     Dates: start: 20111207, end: 20111207
  2. TAXOTERE [Suspect]
     Active Substance: DOCETAXEL
     Indication: BREAST CANCER
     Dosage: 180 MG, CYCLIC
     Route: 042
     Dates: start: 20120104, end: 20120104
  3. TAXOTERE [Suspect]
     Active Substance: DOCETAXEL
     Dosage: UNK
  4. SODIUM CHLORIDE. [Concomitant]
     Active Substance: SODIUM CHLORIDE
     Dosage: UNK, 1X/DAY, 0,9% 108 ML
     Route: 042
     Dates: start: 20120215, end: 20120215
  5. SODIUM CHLORIDE. [Concomitant]
     Active Substance: SODIUM CHLORIDE
     Dosage: UNK, 1X/DAY, 0,9% 250 ML
     Route: 042
     Dates: start: 20111116, end: 20111116
  6. FLUOROURACIL. [Suspect]
     Active Substance: FLUOROURACIL
     Dosage: 900 MG, CYCLIC (QCY)
     Route: 042
     Dates: start: 20111116, end: 20111116
  7. TAXOTERE [Suspect]
     Active Substance: DOCETAXEL
     Dosage: 180 MG, CYCLIC
     Route: 042
     Dates: start: 20120125, end: 20120125
  8. CYCLOPHOSPHAMIDE. [Suspect]
     Active Substance: CYCLOPHOSPHAMIDE
     Dosage: 900 MG, CYCLIC
     Route: 042
     Dates: start: 20111207, end: 20111207
  9. ZOPHREN [ONDANSETRON HYDROCHLORIDE] [Concomitant]
     Active Substance: ONDANSETRON
     Dosage: 8 MG, 1X/DAY
     Route: 042
     Dates: start: 20120125, end: 20120125
  10. EPIRUBICIN HCL [Suspect]
     Active Substance: EPIRUBICIN HYDROCHLORIDE
     Dosage: 180 MG, CYCLIC
     Route: 042
     Dates: start: 20111207, end: 20111207
  11. TAXOTERE [Suspect]
     Active Substance: DOCETAXEL
     Dosage: UNK UNK, CYCLIC (QCY)
     Route: 042
     Dates: start: 20160216, end: 20160216
  12. CYCLOPHOSPHAMIDE. [Suspect]
     Active Substance: CYCLOPHOSPHAMIDE
     Dosage: 900 MG, CYCLIC
     Route: 042
     Dates: start: 20111026, end: 20111026
  13. TAMOXIFEN CITRATE. [Suspect]
     Active Substance: TAMOXIFEN CITRATE
     Indication: BREAST CANCER FEMALE
     Dosage: UNK
     Dates: start: 20120501
  14. ZELITREX [Concomitant]
     Active Substance: VALACYCLOVIR HYDROCHLORIDE
     Dosage: 2 DF, 1X/DAY
  15. CYCLOPHOSPHAMIDE. [Suspect]
     Active Substance: CYCLOPHOSPHAMIDE
     Dosage: 900 MG, CYCLIC
     Route: 042
     Dates: start: 20111116, end: 20111116
  16. ZOPHREN [ONDANSETRON HYDROCHLORIDE] [Concomitant]
     Active Substance: ONDANSETRON
     Dosage: 8 MG, 1X/DAY
     Route: 042
     Dates: start: 20111207, end: 20111207
  17. ZOPHREN [ONDANSETRON HYDROCHLORIDE] [Concomitant]
     Active Substance: ONDANSETRON
     Dosage: 8 MG, 1X/DAY
     Route: 042
     Dates: start: 20120215, end: 20120215
  18. ZOPHREN [ONDANSETRON HYDROCHLORIDE] [Concomitant]
     Active Substance: ONDANSETRON
     Dosage: 8 MG, 1X/DAY
     Route: 042
     Dates: start: 20111116, end: 20111116
  19. ZOPHREN [ONDANSETRON HYDROCHLORIDE] [Concomitant]
     Active Substance: ONDANSETRON
     Dosage: 8 MG, 1X/DAY
     Route: 042
     Dates: start: 20111026, end: 20111026
  20. SODIUM CHLORIDE. [Concomitant]
     Active Substance: SODIUM CHLORIDE
     Dosage: UNK, 1X/DAY, 0,9% 150 ML
     Route: 042
     Dates: start: 20120104, end: 20120104
  21. EPIRUBICIN HCL [Suspect]
     Active Substance: EPIRUBICIN HYDROCHLORIDE
     Dosage: 180 MG, CYCLIC (QCY)
     Route: 042
     Dates: start: 20111026, end: 20111026
  22. EPIRUBICIN HCL [Suspect]
     Active Substance: EPIRUBICIN HYDROCHLORIDE
     Dosage: 180 MG, CYCLIC
     Route: 042
     Dates: start: 20111116, end: 20111116
  23. TAXOTERE [Suspect]
     Active Substance: DOCETAXEL
     Dosage: 180 MG, CYCLIC
     Route: 042
     Dates: start: 20120215, end: 20120215
  24. ZELITREX [Concomitant]
     Active Substance: VALACYCLOVIR HYDROCHLORIDE
     Dosage: 1 DF, 1X/DAY
  25. NOLVADEX [Suspect]
     Active Substance: TAMOXIFEN CITRATE
     Indication: BREAST CANCER
     Dosage: UNK
     Dates: start: 201205
  26. ZOPHREN [ONDANSETRON HYDROCHLORIDE] [Concomitant]
     Active Substance: ONDANSETRON
     Dosage: 8 MG, 1X/DAY
     Route: 042
     Dates: start: 20120104, end: 20120104
  27. SODIUM CHLORIDE. [Concomitant]
     Active Substance: SODIUM CHLORIDE
     Dosage: 250 ML, 1X/DAY, 0,9% 250 ML
     Route: 042
     Dates: start: 20111126, end: 20111126
  28. NEURONTIN [Concomitant]
     Active Substance: GABAPENTIN
     Dosage: UNK
  29. LEVOCARNIL [LEVOCARNITINE] [Concomitant]
     Active Substance: LEVOCARNITINE
     Dosage: UNK
  30. SODIUM CHLORIDE. [Concomitant]
     Active Substance: SODIUM CHLORIDE
     Dosage: UNK, 1X/DAY, 0,9% 250 ML
     Route: 042
     Dates: start: 20111207, end: 20111207
  31. SODIUM CHLORIDE. [Concomitant]
     Active Substance: SODIUM CHLORIDE
     Dosage: UNK, 1X/DAY, 0,9% 50 ML
     Route: 042
     Dates: start: 20120125, end: 20120125
  32. FLUOROURACIL. [Suspect]
     Active Substance: FLUOROURACIL
     Dosage: 900 MG, CYCLIC (QCY)
     Route: 042
     Dates: start: 20111026, end: 20111026

REACTIONS (34)
  - Pain [Not Recovered/Not Resolved]
  - Dysstasia [Not Recovered/Not Resolved]
  - Muscle contracture [Not Recovered/Not Resolved]
  - Burning sensation [Unknown]
  - Paraesthesia [Unknown]
  - Facial pain [Not Recovered/Not Resolved]
  - Muscle spasms [Unknown]
  - Neuralgia [Not Recovered/Not Resolved]
  - Tinnitus [Not Recovered/Not Resolved]
  - Weight increased [Recovered/Resolved]
  - Ageusia [Unknown]
  - Neuropathy peripheral [Not Recovered/Not Resolved]
  - Pain in extremity [Not Recovered/Not Resolved]
  - Tetany [Not Recovered/Not Resolved]
  - Hallucination [Not Recovered/Not Resolved]
  - Impaired work ability [Not Recovered/Not Resolved]
  - Myalgia [Not Recovered/Not Resolved]
  - Gait disturbance [Not Recovered/Not Resolved]
  - Radiation neuropathy [Not Recovered/Not Resolved]
  - Vomiting [Unknown]
  - Cognitive disorder [Not Recovered/Not Resolved]
  - Hot flush [Not Recovered/Not Resolved]
  - Arthralgia [Unknown]
  - Emotional disorder [Not Recovered/Not Resolved]
  - Blister [Unknown]
  - Depression [Not Recovered/Not Resolved]
  - Visual impairment [Not Recovered/Not Resolved]
  - Neuromuscular pain [Not Recovered/Not Resolved]
  - Xerosis [Unknown]
  - Cognitive disorder [Unknown]
  - Insomnia [Not Recovered/Not Resolved]
  - Quality of life decreased [Not Recovered/Not Resolved]
  - Fatigue [Not Recovered/Not Resolved]
  - Disturbance in attention [Not Recovered/Not Resolved]

NARRATIVE: CASE EVENT DATE: 2011
